FAERS Safety Report 4559346-9 (Version None)
Quarter: 2005Q1

REPORT INFORMATION
  Report Type: 
  Country: None (occurrence: None)
  Receive Date: 20050124
  Receipt Date: 20041216
  Transmission Date: 20050727
  Serious: Yes (Other)
  Sender: FDA-Public Use
  Company Number: PHHO2004CA18078

PATIENT
  Age: 47 Year
  Sex: Female

DRUGS (5)
  1. CLOPIXOL [Concomitant]
  2. SEROQUEL [Concomitant]
  3. CELEXA [Concomitant]
  4. VALPROIC ACID [Concomitant]
  5. CLOZARIL [Suspect]
     Indication: SCHIZOAFFECTIVE DISORDER
     Dosage: UP TO 300MG DAILY
     Route: 048
     Dates: start: 20040618, end: 20041210

REACTIONS (5)
  - DIABETES MELLITUS [None]
  - HYPERGLYCAEMIA [None]
  - LETHARGY [None]
  - SLEEP WALKING [None]
  - SOMNOLENCE [None]
